FAERS Safety Report 11820943 (Version 1)
Quarter: 2015Q4

REPORT INFORMATION
  Report Type: Spontaneous
  Country: US (occurrence: US)
  Receive Date: 20151210
  Receipt Date: 20151210
  Transmission Date: 20160305
  Serious: No
  Sender: FDA-Public Use
  Company Number: US-JNJFOC-20150722250

PATIENT
  Sex: Female

DRUGS (11)
  1. VANCOCIN [Concomitant]
     Active Substance: VANCOMYCIN HYDROCHLORIDE
  2. ALPRAZOLAM. [Concomitant]
     Active Substance: ALPRAZOLAM
  3. TEMAZEPAM. [Concomitant]
     Active Substance: TEMAZEPAM
  4. COMPAZINE [Concomitant]
     Active Substance: PROCHLORPERAZINE MALEATE
  5. ENOXAPARIN [Concomitant]
     Active Substance: ENOXAPARIN
  6. ONDANSETRON [Concomitant]
     Active Substance: ONDANSETRON
  7. ACYCLOVIR. [Concomitant]
     Active Substance: ACYCLOVIR
  8. PANTOPRAZOLE [Concomitant]
     Active Substance: PANTOPRAZOLE SODIUM
  9. IMBRUVICA [Suspect]
     Active Substance: IBRUTINIB
     Indication: MANTLE CELL LYMPHOMA
     Route: 048
     Dates: start: 20140723
  10. METRONIDAZOLE. [Concomitant]
     Active Substance: METRONIDAZOLE
  11. ZOLOFT [Concomitant]
     Active Substance: SERTRALINE HYDROCHLORIDE

REACTIONS (2)
  - Nasal mucosal ulcer [Unknown]
  - Rhinorrhoea [Unknown]
